FAERS Safety Report 9448384 (Version 2)
Quarter: 2013Q3

REPORT INFORMATION
  Report Type: Report from Study
  Country: CA (occurrence: CA)
  Receive Date: 20130808
  Receipt Date: 20130815
  Transmission Date: 20140515
  Serious: Yes (Other)
  Sender: FDA-Public Use
  Company Number: CA-ALEXION PHARMACEUTICALS INC.-A201301809

PATIENT
  Age: 5 Year
  Sex: Female
  Weight: 13.6 kg

DRUGS (7)
  1. SOLIRIS [Suspect]
     Indication: HAEMOLYTIC URAEMIC SYNDROME
     Dosage: 300 MG, QW
     Route: 042
     Dates: start: 20130117, end: 20130117
  2. SOLIRIS [Suspect]
     Dosage: 300 MG, Q2W
     Dates: start: 20130201
  3. RITALIN [Concomitant]
     Indication: PSYCHOMOTOR HYPERACTIVITY
     Dosage: 10 MG, BID
     Route: 048
     Dates: start: 201308
  4. CELLCEPT [Concomitant]
     Indication: NEPHROPROTECTIVE THERAPY
     Dosage: 1.8 ML, BID
     Route: 048
     Dates: start: 201301
  5. PREDNISOLONE [Concomitant]
     Indication: AUTOIMMUNE DISORDER
     Dosage: 5 ML, QD
     Route: 048
     Dates: start: 201301
  6. CALCIA [Concomitant]
     Indication: SUPPLEMENTATION THERAPY
     Dosage: 40 IU/VITAMINE D, 1 TABLET, QD
     Route: 048
     Dates: start: 201301
  7. AMOXICILLINE [Concomitant]
     Indication: PROPHYLAXIS
     Dosage: 6 ML, BID
     Route: 048
     Dates: start: 201301

REACTIONS (1)
  - Device occlusion [Recovered/Resolved]
